FAERS Safety Report 21006694 (Version 1)
Quarter: 2022Q2

REPORT INFORMATION
  Report Type: Spontaneous
  Country: FR (occurrence: FR)
  Receive Date: 20220625
  Receipt Date: 20220625
  Transmission Date: 20220721
  Serious: Yes (Other)
  Sender: FDA-Public Use
  Company Number: None

PATIENT
  Age: 4 Year
  Sex: Female

DRUGS (3)
  1. AMOXICILLIN [Suspect]
     Active Substance: AMOXICILLIN
     Indication: Laryngitis
     Route: 048
     Dates: start: 202205
  2. FRAMYCETIN\MONOETHANOLAMINE [Concomitant]
     Active Substance: FRAMYCETIN\MONOETHANOLAMINE
     Indication: Laryngitis
     Dates: start: 202205
  3. ATROPINE SULFATE [Concomitant]
     Active Substance: ATROPINE SULFATE
     Indication: Fundoscopy
     Dates: start: 202205

REACTIONS (1)
  - Erythema [Recovered/Resolved]

NARRATIVE: CASE EVENT DATE: 20220521
